FAERS Safety Report 11382968 (Version 5)
Quarter: 2015Q4

REPORT INFORMATION
  Report Type: Spontaneous
  Country: US (occurrence: US)
  Receive Date: 20150814
  Receipt Date: 20151223
  Transmission Date: 20160304
  Serious: Yes (Other)
  Sender: FDA-Public Use
  Company Number: US-PFIZER INC-2015266910

PATIENT
  Age: 57 Year
  Sex: Female

DRUGS (14)
  1. CLONAZEPAM. [Concomitant]
     Active Substance: CLONAZEPAM
     Indication: FIBROMYALGIA
     Dosage: 1 MG, 1X/DAY (NIGHT)
  2. ADVIL [Concomitant]
     Active Substance: IBUPROFEN
     Indication: BURNING SENSATION
     Dosage: UNK, 4X/DAY
     Dates: start: 2000
  3. OMEPRAZOLE. [Concomitant]
     Active Substance: OMEPRAZOLE
     Indication: GASTROOESOPHAGEAL REFLUX DISEASE
     Dosage: 40 MG, 1X/DAY
  4. PHENADOZ [Concomitant]
     Active Substance: PROMETHAZINE HYDROCHLORIDE
     Indication: NAUSEA
     Dosage: 25 MG, AS NEEDED (OR EVERY 6 HOURS)
     Dates: start: 1999
  5. DURAGESIC [Concomitant]
     Active Substance: FENTANYL
     Indication: PANCREATITIS CHRONIC
     Dosage: 75X48 HRS
     Dates: start: 2000
  6. LYRICA [Suspect]
     Active Substance: PREGABALIN
     Indication: OSTEOPOROSIS
     Dosage: UNK
     Dates: start: 2006, end: 201501
  7. ADDERALL [Concomitant]
     Active Substance: AMPHETAMINE ASPARTATE\AMPHETAMINE SULFATE\DEXTROAMPHETAMINE SACCHARATE\DEXTROAMPHETAMINE SULFATE
     Dosage: 5 MG, 1X/DAY
     Dates: start: 2013
  8. LYRICA [Suspect]
     Active Substance: PREGABALIN
     Indication: MUSCULOSKELETAL DISCOMFORT
  9. CLONAZEPAM. [Concomitant]
     Active Substance: CLONAZEPAM
     Dosage: 1 MG AT NIGHT OR 2 IN DAY IF NEEDED
  10. LYRICA [Suspect]
     Active Substance: PREGABALIN
     Indication: FIBROMYALGIA
     Dosage: 75 MG, 3X/DAY
     Route: 048
  11. SUCRALFATE. [Concomitant]
     Active Substance: SUCRALFATE
     Indication: ABDOMINAL DISCOMFORT
     Dosage: 1 G, 4X/DAY
  12. FENTANYL. [Concomitant]
     Active Substance: FENTANYL
     Indication: PANCREATITIS CHRONIC
     Dosage: PATCH 75 MG X 48 HOURS
     Dates: start: 2000
  13. LYRICA [Suspect]
     Active Substance: PREGABALIN
     Indication: KYPHOSIS
  14. ADVIL [Concomitant]
     Active Substance: IBUPROFEN
     Indication: PAIN

REACTIONS (10)
  - Burning sensation [Not Recovered/Not Resolved]
  - Back pain [Not Recovered/Not Resolved]
  - Musculoskeletal pain [Not Recovered/Not Resolved]
  - Abasia [Not Recovered/Not Resolved]
  - Neck pain [Not Recovered/Not Resolved]
  - Bone density decreased [Unknown]
  - Pain in extremity [Not Recovered/Not Resolved]
  - Arthralgia [Unknown]
  - Pain [Not Recovered/Not Resolved]
  - Malaise [Unknown]

NARRATIVE: CASE EVENT DATE: 2010
